FAERS Safety Report 20441958 (Version 6)
Quarter: 2022Q4

REPORT INFORMATION
  Report Type: Spontaneous
  Country: GB (occurrence: GB)
  Receive Date: 20220208
  Receipt Date: 20221014
  Transmission Date: 20230113
  Serious: Yes (Other)
  Sender: FDA-Public Use
  Company Number: GB-ROCHE-3000843

PATIENT
  Age: 56 Year
  Sex: Male
  Weight: 80.6 kg

DRUGS (15)
  1. BEVACIZUMAB [Suspect]
     Active Substance: BEVACIZUMAB
     Indication: Hepatocellular carcinoma
     Dosage: 1200 MILLIGRAM
     Route: 065
     Dates: start: 20211125
  2. ATEZOLIZUMAB [Suspect]
     Active Substance: ATEZOLIZUMAB
     Indication: Hepatocellular carcinoma
     Dosage: 1200 MILLIGRAM
     Route: 041
     Dates: start: 20211125
  3. CARVEDILOL [Concomitant]
     Active Substance: CARVEDILOL
     Indication: Prophylaxis
     Dosage: UNK, QD
     Route: 065
     Dates: start: 20211112, end: 20220110
  4. CARVEDILOL [Concomitant]
     Active Substance: CARVEDILOL
     Dosage: UNK, QD
     Route: 065
     Dates: start: 20220110
  5. FOLIC ACID [Concomitant]
     Active Substance: FOLIC ACID
     Indication: Folate deficiency
     Dosage: UNK, QD
     Route: 065
     Dates: start: 20140331
  6. LEVOTHYROXINE [Concomitant]
     Active Substance: LEVOTHYROXINE
     Dosage: UNK, QD
     Route: 065
     Dates: start: 20210526, end: 20220107
  7. LOPERAMIDE [Concomitant]
     Active Substance: LOPERAMIDE
     Dosage: UNK, BID
     Route: 065
     Dates: start: 20150106
  8. THIAMINE [Concomitant]
     Active Substance: THIAMINE
     Dosage: UNK, BID
     Route: 065
     Dates: start: 20100413
  9. NIACINAMIDE\PYRIDOXINE HYDROCHLORIDE\RIBOFLAVIN\THIAMINE HYDROCHLORIDE [Concomitant]
     Active Substance: NIACINAMIDE\PYRIDOXINE HYDROCHLORIDE\RIBOFLAVIN\THIAMINE HYDROCHLORIDE
     Dosage: UNK, QD
     Route: 065
     Dates: start: 20080902
  10. ACETAMINOPHEN [Concomitant]
     Active Substance: ACETAMINOPHEN
     Indication: Pain
     Dosage: UNK UNK, AS NECESSARY
     Dates: start: 20220311
  11. DEXAMETHASONE [Concomitant]
     Active Substance: DEXAMETHASONE
     Dosage: UNK UNK, BID
     Route: 065
     Dates: start: 20220110
  12. DEXAMETHASONE [Concomitant]
     Active Substance: DEXAMETHASONE
     Dosage: UNK UNK, QD
     Route: 065
     Dates: start: 20220521, end: 20220604
  13. ATEZOLIZUMAB [Concomitant]
     Active Substance: ATEZOLIZUMAB
  14. LENVATINIB [Concomitant]
     Active Substance: LENVATINIB
     Dosage: UNK UNK, QD
     Route: 065
     Dates: start: 20220715, end: 20220830
  15. SORAFENIB [Concomitant]
     Active Substance: SORAFENIB
     Dosage: UNK UNK, QD
     Route: 065
     Dates: start: 20220617, end: 20220622

REACTIONS (1)
  - Hypothyroidism [Not Recovered/Not Resolved]

NARRATIVE: CASE EVENT DATE: 20220106
